FAERS Safety Report 9000168 (Version 3)
Quarter: 2013Q1

REPORT INFORMATION
  Report Type: Report from Study
  Country: CA (occurrence: CA)
  Receive Date: 20130102
  Receipt Date: 20130325
  Transmission Date: 20140127
  Serious: Yes (Other)
  Sender: FDA-Public Use
  Company Number: CA-JNJFOC-20121213738

PATIENT
  Age: 52 Year
  Sex: Female
  Weight: 68 kg

DRUGS (8)
  1. REMICADE [Suspect]
     Indication: RHEUMATOID ARTHRITIS
     Route: 042
     Dates: start: 20121220
  2. REMICADE [Suspect]
     Indication: RHEUMATOID ARTHRITIS
     Route: 042
     Dates: start: 20070507
  3. TYLENOL 3 [Concomitant]
     Indication: FIBROMYALGIA
     Route: 065
  4. PREDNISONE [Concomitant]
     Indication: RHEUMATOID ARTHRITIS
     Route: 048
  5. DIDROCAL [Concomitant]
     Indication: OSTEOPOROSIS PROPHYLAXIS
     Route: 065
  6. ARAVA [Concomitant]
     Indication: RHEUMATOID ARTHRITIS
     Route: 048
  7. FLEXERIL [Concomitant]
     Indication: FIBROMYALGIA
     Route: 065
  8. LEFLUNOMIDE [Concomitant]
     Route: 065

REACTIONS (2)
  - Toe operation [Recovered/Resolved]
  - Localised infection [Recovered/Resolved]
